FAERS Safety Report 17770897 (Version 2)
Quarter: 2020Q2

REPORT INFORMATION
  Report Type: Spontaneous
  Country: JP (occurrence: JP)
  Receive Date: 20200512
  Receipt Date: 20200519
  Transmission Date: 20200714
  Serious: Yes (Other)
  Sender: FDA-Public Use
  Company Number: JP-PFIZER INC-2020185201

PATIENT
  Age: 84 Year
  Sex: Male

DRUGS (2)
  1. HALCION [Suspect]
     Active Substance: TRIAZOLAM
     Dosage: A SLIGHTLY HIGHER DOSE THAN 0.25 MG
  2. HALCION [Suspect]
     Active Substance: TRIAZOLAM
     Dosage: 0.25 MG

REACTIONS (1)
  - Interstitial lung disease [Unknown]
